FAERS Safety Report 6299952-7 (Version None)
Quarter: 2009Q3

REPORT INFORMATION
  Report Type: 
  Country: None (occurrence: None)
  Receive Date: 20090806
  Receipt Date: 20090803
  Transmission Date: 20100115
  Serious: Yes (Hospitalization)
  Sender: FDA-Public Use
  Company Number: JP-WYE-H09948409

PATIENT
  Sex: Female

DRUGS (6)
  1. ANCARON [Suspect]
     Indication: ATRIAL FIBRILLATION
     Route: 048
     Dates: start: 20080304, end: 20080711
  2. RENIVACE [Concomitant]
     Indication: CARDIAC DISORDER
     Route: 048
     Dates: start: 20080302
  3. ALDACTONE [Concomitant]
     Indication: CARDIAC DISORDER
     Route: 048
     Dates: start: 20080302
  4. WARFARIN SODIUM [Concomitant]
     Indication: CARDIAC DISORDER
     Route: 048
     Dates: start: 20080302
  5. ARTIST [Concomitant]
     Route: 048
     Dates: start: 20080305
  6. FUROSEMIDE [Concomitant]
     Indication: CARDIAC DISORDER
     Route: 048
     Dates: start: 20080302

REACTIONS (2)
  - INTERSTITIAL LUNG DISEASE [None]
  - MORAXELLA INFECTION [None]
